FAERS Safety Report 4598695-5 (Version None)
Quarter: 2005Q1

REPORT INFORMATION
  Report Type: 
  Country: None (occurrence: None)
  Receive Date: 20050302
  Receipt Date: 20050302
  Transmission Date: 20050727
  Serious: Yes (Death)
  Sender: FDA-Public Use
  Company Number: None

PATIENT
  Age: 89 Year
  Sex: Female
  Weight: 506.2143 kg

DRUGS (2)
  1. TOBRAMYCIN [Suspect]
     Indication: INSPIRATORY CAPACITY DECREASED
     Dosage: FULL ONE TIME INTRADISCA
     Route: 024
     Dates: start: 20041029, end: 20041029
  2. TOBRAMYCIN [Suspect]
     Indication: KYPHOSIS
     Dosage: FULL ONE TIME INTRADISCA
     Route: 024
     Dates: start: 20041029, end: 20041029

REACTIONS (3)
  - CARDIO-RESPIRATORY ARREST [None]
  - PROCEDURAL COMPLICATION [None]
  - PULMONARY EMBOLISM [None]
